FAERS Safety Report 16976429 (Version 3)
Quarter: 2020Q1

REPORT INFORMATION
  Report Type: Spontaneous
  Country: US (occurrence: US)
  Receive Date: 20191030
  Receipt Date: 20200325
  Transmission Date: 20200409
  Serious: Yes (Other)
  Sender: FDA-Public Use
  Company Number: US-JNJFOC-20191033610

PATIENT
  Sex: Female
  Weight: 106.24 kg

DRUGS (1)
  1. REMICADE [Suspect]
     Active Substance: INFLIXIMAB
     Indication: CROHN^S DISEASE
     Route: 042
     Dates: start: 2010, end: 2012

REACTIONS (10)
  - Drug ineffective [Not Recovered/Not Resolved]
  - Weight increased [Unknown]
  - Fluid retention [Unknown]
  - Heart rate increased [Unknown]
  - Blood pressure increased [Unknown]
  - Incorrect drug administration rate [Unknown]
  - Sleep disorder [Unknown]
  - Urticaria [Unknown]
  - Infusion related reaction [Unknown]
  - Major depression [Unknown]

NARRATIVE: CASE EVENT DATE: 2012
